FAERS Safety Report 14672166 (Version 8)
Quarter: 2019Q2

REPORT INFORMATION
  Report Type: Spontaneous
  Country: US (occurrence: US)
  Receive Date: 20180323
  Receipt Date: 20190405
  Transmission Date: 20190711
  Serious: Yes (Hospitalization)
  Sender: FDA-Public Use
  Company Number: US-ASTRAZENECA-2018SE24126

PATIENT
  Age: 32300 Day
  Sex: Female
  Weight: 68 kg

DRUGS (5)
  1. MAXAIR [Concomitant]
     Active Substance: PIRBUTEROL ACETATE
     Indication: EMPHYSEMA
  2. MAXAIR [Concomitant]
     Active Substance: PIRBUTEROL ACETATE
     Indication: CHRONIC OBSTRUCTIVE PULMONARY DISEASE
  3. SPIRIVA [Concomitant]
     Active Substance: TIOTROPIUM BROMIDE MONOHYDRATE
     Route: 055
  4. TUDORZA PRESSAIR [Suspect]
     Active Substance: ACLIDINIUM BROMIDE
     Indication: CHRONIC OBSTRUCTIVE PULMONARY DISEASE
     Route: 055
  5. MAXAIR [Concomitant]
     Active Substance: PIRBUTEROL ACETATE
     Indication: ASTHMA

REACTIONS (20)
  - Dysphonia [Unknown]
  - Musculoskeletal discomfort [Unknown]
  - Feeling abnormal [Unknown]
  - Hypoacusis [Unknown]
  - Hypoaesthesia [Unknown]
  - Stress [Unknown]
  - Oropharyngeal pain [Unknown]
  - Chronic obstructive pulmonary disease [Unknown]
  - Incorrect dose administered [Unknown]
  - Product outer packaging issue [Unknown]
  - Dyspnoea [Unknown]
  - Gait disturbance [Unknown]
  - Headache [Unknown]
  - Intentional device misuse [Unknown]
  - Tension headache [Unknown]
  - Body height decreased [Unknown]
  - Device malfunction [Unknown]
  - Wrong technique in product usage process [Unknown]
  - Pain [Unknown]
  - Drug dose omission by device [Unknown]

NARRATIVE: CASE EVENT DATE: 20190311
